FAERS Safety Report 16923772 (Version 1)
Quarter: 2019Q4

REPORT INFORMATION
  Report Type: Spontaneous
  Country: US (occurrence: US)
  Receive Date: 20191016
  Receipt Date: 20191016
  Transmission Date: 20200122
  Serious: Yes (Other)
  Sender: FDA-Public Use
  Company Number: NVSC2019US001997

PATIENT

DRUGS (1)
  1. CLOFAZIMINE [Suspect]
     Active Substance: CLOFAZIMINE
     Indication: PRODUCT USED FOR UNKNOWN INDICATION
     Dosage: UNK
     Route: 065

REACTIONS (3)
  - Skin discolouration [Unknown]
  - Crystal urine present [Unknown]
  - Renal failure [Unknown]
